FAERS Safety Report 10632294 (Version 1)
Quarter: 2014Q4

REPORT INFORMATION
  Report Type: Spontaneous
  Country: US (occurrence: US)
  Receive Date: 20141205
  Receipt Date: 20141205
  Transmission Date: 20150529
  Serious: No
  Sender: FDA-Public Use
  Company Number: US-BRISTOL-MYERS SQUIBB COMPANY-21283940

PATIENT
  Sex: Male

DRUGS (2)
  1. XANAX [Suspect]
     Active Substance: ALPRAZOLAM
     Route: 065
     Dates: start: 201402, end: 2014
  2. ABILIFY [Suspect]
     Active Substance: ARIPIPRAZOLE
     Indication: SCHIZOPHRENIA, PARANOID TYPE
     Dosage: STRENGTH: 5MG, NIGHT-7.5MG, MORN-2MG
     Route: 048
     Dates: start: 201402

REACTIONS (7)
  - Wrong technique in drug usage process [Unknown]
  - Fatigue [Unknown]
  - Somnolence [Unknown]
  - Aphasia [Unknown]
  - Confusional state [Unknown]
  - Distractibility [Unknown]
  - Mood swings [Unknown]

NARRATIVE: CASE EVENT DATE: 2014
